FAERS Safety Report 26190852 (Version 1)
Quarter: 2025Q4

REPORT INFORMATION
  Report Type: Report from Study
  Country: US (occurrence: US)
  Receive Date: 20251223
  Receipt Date: 20251223
  Transmission Date: 20260117
  Serious: Yes (Hospitalization)
  Sender: MERCK KGAA
  Company Number: US-Merck Healthcare KGaA-2025065775

PATIENT
  Sex: Male

DRUGS (1)
  1. TEPMETKO [Suspect]
     Active Substance: TEPOTINIB HYDROCHLORIDE
     Indication: Neoplasm malignant
     Dates: start: 20241211

REACTIONS (1)
  - Central nervous system lesion [Unknown]
